FAERS Safety Report 6848680-5 (Version None)
Quarter: 2010Q3

REPORT INFORMATION
  Report Type: 
  Country: None (occurrence: None)
  Receive Date: 20100716
  Receipt Date: 20070905
  Transmission Date: 20110219
  Serious: No
  Sender: FDA-Public Use
  Company Number: US-PFIZER INC-2007074793

PATIENT
  Age: 21 Year
  Sex: Female
  Weight: 59 kg

DRUGS (2)
  1. CHANTIX [Suspect]
     Indication: SMOKING CESSATION THERAPY
     Route: 048
     Dates: start: 20070827
  2. HORMONAL CONTRACEPTIVES FOR SYSTEMIC USE [Concomitant]

REACTIONS (2)
  - ABDOMINAL PAIN [None]
  - INSOMNIA [None]
